FAERS Safety Report 19194053 (Version 1)
Quarter: 2021Q2

REPORT INFORMATION
  Report Type: Spontaneous
  Country: US (occurrence: US)
  Receive Date: 20210428
  Receipt Date: 20210428
  Transmission Date: 20210717
  Serious: Yes (Hospitalization)
  Sender: FDA-Public Use
  Company Number: None

PATIENT
  Age: 62 Year
  Sex: Male
  Weight: 118 kg

DRUGS (1)
  1. TESTOSTERONE (TESTOSTERONE 2MG/24HRS PATCH) [Suspect]
     Active Substance: TESTOSTERONE
     Route: 061
     Dates: start: 20200318, end: 20200506

REACTIONS (5)
  - Oedema [None]
  - Weight increased [None]
  - Cardiac failure acute [None]
  - Dyspnoea [None]
  - Fluid overload [None]

NARRATIVE: CASE EVENT DATE: 20200416
